FAERS Safety Report 19462966 (Version 4)
Quarter: 2022Q3

REPORT INFORMATION
  Report Type: Spontaneous
  Country: US (occurrence: US)
  Receive Date: 20210625
  Receipt Date: 20220926
  Transmission Date: 20221026
  Serious: Yes (Other)
  Sender: FDA-Public Use
  Company Number: US-TEVA-2021-US-1925393

PATIENT
  Age: 83 Year
  Sex: Female
  Weight: 77.56 kg

DRUGS (14)
  1. HYDROCHLOROTHIAZIDE\VALSARTAN [Suspect]
     Active Substance: HYDROCHLOROTHIAZIDE\VALSARTAN
     Indication: Hypertension
     Dosage: 320 MG VALSARTAN/12.5MG HYDROCHLOROTHIAZIDE
     Route: 065
     Dates: start: 20130905, end: 20140114
  2. HYDROCHLOROTHIAZIDE\VALSARTAN [Suspect]
     Active Substance: HYDROCHLOROTHIAZIDE\VALSARTAN
     Dosage: 320 MG VALSARTAN/12.5MG HYDROCHLOROTHIAZIDE
     Route: 048
     Dates: start: 20140204, end: 20150106
  3. HYDROCHLOROTHIAZIDE\VALSARTAN [Suspect]
     Active Substance: HYDROCHLOROTHIAZIDE\VALSARTAN
     Dosage: 320 MG VALSARTAN/12.5MG HYDROCHLOROTHIAZIDE
     Route: 048
     Dates: start: 20140204, end: 20150106
  4. HYDROCHLOROTHIAZIDE\VALSARTAN [Suspect]
     Active Substance: HYDROCHLOROTHIAZIDE\VALSARTAN
     Dosage: 320 MG VALSARTAN/12.5MG HYDROCHLOROTHIAZIDE
     Route: 048
     Dates: start: 20140204, end: 20150106
  5. HYDROCHLOROTHIAZIDE\VALSARTAN [Suspect]
     Active Substance: HYDROCHLOROTHIAZIDE\VALSARTAN
     Dosage: 320 MG VALSARTAN/12.5MG HYDROCHLOROTHIAZIDE
     Route: 048
     Dates: start: 20140204, end: 20150106
  6. HYDROCHLOROTHIAZIDE\VALSARTAN [Suspect]
     Active Substance: HYDROCHLOROTHIAZIDE\VALSARTAN
     Dosage: 320 MG VALSARTAN/12.5MG HYDROCHLOROTHIAZIDE
     Route: 048
     Dates: start: 20140204, end: 20150106
  7. HYDROCHLOROTHIAZIDE\VALSARTAN [Suspect]
     Active Substance: HYDROCHLOROTHIAZIDE\VALSARTAN
     Dosage: 320 MG VALSARTAN/12.5MG HYDROCHLOROTHIAZIDE
     Route: 048
     Dates: start: 20140204, end: 20150106
  8. ISORDIL [Concomitant]
     Active Substance: ISOSORBIDE DINITRATE
     Indication: Product used for unknown indication
     Route: 065
  9. ATENOLOL [Concomitant]
     Active Substance: ATENOLOL
     Indication: Hypertension
     Dosage: DOSAGE 25 MG TWO TABLETS TWICE A DAY
     Route: 048
     Dates: start: 20140204, end: 20150305
  10. HYDROCHLOROTHIAZIDE [Concomitant]
     Active Substance: HYDROCHLOROTHIAZIDE
     Indication: Product used for unknown indication
     Dosage: DOSAGE: 30 MG
     Route: 065
  11. Glyburide-Metformin [Concomitant]
     Indication: Product used for unknown indication
     Dosage: DOSAGE: 120 MG
     Route: 065
  12. GABAPENTIN [Concomitant]
     Active Substance: GABAPENTIN
     Indication: Product used for unknown indication
     Dosage: DOSAGE: 300 MG
     Route: 065
  13. ZOLPIDEM TARTRATE [Concomitant]
     Active Substance: ZOLPIDEM TARTRATE
     Indication: Product used for unknown indication
     Dosage: DOSAGE: 30 MG
     Route: 065
  14. METFORMIN HYDROCHLORIDE [Concomitant]
     Active Substance: METFORMIN HYDROCHLORIDE
     Indication: Type 2 diabetes mellitus
     Dosage: DOSAGE: 1000 MG TWO TABLETS TWICE A DAY
     Route: 048
     Dates: start: 20140214, end: 20141205

REACTIONS (2)
  - Colorectal adenocarcinoma [Recovered/Resolved]
  - Rectal haemorrhage [Recovered/Resolved]
